FAERS Safety Report 24430590 (Version 1)
Quarter: 2024Q4

REPORT INFORMATION
  Report Type: Spontaneous
  Country: MX (occurrence: MX)
  Receive Date: 20241013
  Receipt Date: 20241013
  Transmission Date: 20250115
  Serious: Yes (Other)
  Sender: JOHNSON AND JOHNSON
  Company Number: MX-BAYER-2024A145183

PATIENT
  Age: 72 Year
  Sex: Male

DRUGS (1)
  1. RIVAROXABAN [Suspect]
     Active Substance: RIVAROXABAN
     Indication: Product used for unknown indication
     Dosage: 2.5 MG, BID
     Route: 048
     Dates: start: 202410

REACTIONS (1)
  - Dengue fever [Not Recovered/Not Resolved]
